FAERS Safety Report 9993365 (Version 3)
Quarter: 2014Q2

REPORT INFORMATION
  Report Type: Spontaneous
  Country: US (occurrence: US)
  Receive Date: 20140310
  Receipt Date: 20140420
  Transmission Date: 20141212
  Serious: Yes (Other)
  Sender: FDA-Public Use
  Company Number: PHEH2014US004631

PATIENT
  Sex: Female

DRUGS (3)
  1. FEMARA [Suspect]
     Dosage: UNK UKN, UNK
  2. LUPRON [Suspect]
     Dosage: UNK UKN, UNK
  3. HERCEPTIN [Concomitant]
     Dosage: UNK UKN, UNK

REACTIONS (1)
  - Pulmonary hypertension [Unknown]
